FAERS Safety Report 18525856 (Version 1)
Quarter: 2020Q4

REPORT INFORMATION
  Report Type: Other
  Country: CA (occurrence: CA)
  Receive Date: 20201120
  Receipt Date: 20201120
  Transmission Date: 20210114
  Serious: Yes (Death, Other)
  Sender: FDA-Public Use
  Company Number: CA-APOTEX-2020AP021721

PATIENT

DRUGS (4)
  1. METHOTREXATE. [Suspect]
     Active Substance: METHOTREXATE
     Indication: ALLOGENIC STEM CELL TRANSPLANTATION
  2. METHOTREXATE. [Suspect]
     Active Substance: METHOTREXATE
     Indication: PROPHYLAXIS AGAINST GRAFT VERSUS HOST DISEASE
     Dosage: UNK
     Route: 065
  3. CYCLOSPORINE. [Suspect]
     Active Substance: CYCLOSPORINE
     Indication: PROPHYLAXIS AGAINST GRAFT VERSUS HOST DISEASE
     Dosage: UNK
     Route: 065
  4. CYCLOSPORINE. [Suspect]
     Active Substance: CYCLOSPORINE
     Indication: ALLOGENIC STEM CELL TRANSPLANTATION

REACTIONS (10)
  - Graft versus host disease in gastrointestinal tract [Fatal]
  - Chronic graft versus host disease in intestine [Unknown]
  - Off label use [Fatal]
  - Obliterative bronchiolitis [Fatal]
  - Drug ineffective [Unknown]
  - Chronic graft versus host disease in skin [Fatal]
  - Chronic graft versus host disease in liver [Fatal]
  - Drug ineffective for unapproved indication [Fatal]
  - Product use in unapproved indication [Not Recovered/Not Resolved]
  - Graft versus host disease in eye [Fatal]
